FAERS Safety Report 5063419-4 (Version None)
Quarter: 2006Q3

REPORT INFORMATION
  Report Type: 
  Country: None (occurrence: None)
  Receive Date: 20060727
  Receipt Date: 20060717
  Transmission Date: 20061208
  Serious: Yes (Other)
  Sender: FDA-Public Use
  Company Number: PL-BRISTOL-MYERS SQUIBB COMPANY-13444047

PATIENT
  Age: 35 Year
  Sex: Male

DRUGS (3)
  1. METHOTREXATE [Suspect]
     Indication: PSORIATIC ARTHROPATHY
  2. CYCLOSPORINE [Suspect]
     Indication: PSORIATIC ARTHROPATHY
  3. METHYLPREDNISOLONE [Suspect]
     Indication: PSORIATIC ARTHROPATHY

REACTIONS (1)
  - HAEMANGIOMA [None]
